FAERS Safety Report 6015796-5 (Version None)
Quarter: 2008Q4

REPORT INFORMATION
  Report Type: 
  Country: None (occurrence: None)
  Receive Date: 20081222
  Receipt Date: 20081211
  Transmission Date: 20090506
  Serious: Yes (Hospitalization)
  Sender: FDA-Public Use
  Company Number: DE-AMGEN-US313224

PATIENT
  Sex: Female

DRUGS (1)
  1. ENBREL [Suspect]
     Indication: PSORIASIS
     Route: 058
     Dates: start: 20080529

REACTIONS (3)
  - ASPARTATE AMINOTRANSFERASE INCREASED [None]
  - FOOT FRACTURE [None]
  - GAMMA-GLUTAMYLTRANSFERASE INCREASED [None]
